FAERS Safety Report 19755800 (Version 3)
Quarter: 2022Q1

REPORT INFORMATION
  Report Type: Spontaneous
  Country: US (occurrence: US)
  Receive Date: 20210827
  Receipt Date: 20220203
  Transmission Date: 20220423
  Serious: No
  Sender: FDA-Public Use
  Company Number: US-GSKCCFUS-CASE-01145528_AE-67387

PATIENT
  Age: 77 Year
  Sex: Female

DRUGS (1)
  1. BENLYSTA [Suspect]
     Active Substance: BELIMUMAB
     Indication: Systemic lupus erythematosus
     Dosage: 200 MG/ML
     Route: 058
     Dates: start: 2021

REACTIONS (5)
  - Pain in extremity [Not Recovered/Not Resolved]
  - Injection site pain [Recovered/Resolved]
  - Dizziness [Not Recovered/Not Resolved]
  - Skin lesion [Recovered/Resolved]
  - Injection site haemorrhage [Unknown]

NARRATIVE: CASE EVENT DATE: 20210824
